FAERS Safety Report 24318084 (Version 1)
Quarter: 2024Q3

REPORT INFORMATION
  Report Type: Report from Study
  Country: IT (occurrence: IT)
  Receive Date: 20240913
  Receipt Date: 20240913
  Transmission Date: 20241017
  Serious: No
  Sender: SANDOZ
  Company Number: IT-SANDOZ-SDZ2024IT079880

PATIENT
  Age: 12 Year
  Sex: Female
  Weight: 33 kg

DRUGS (1)
  1. OMNITROPE [Suspect]
     Active Substance: SOMATROPIN
     Indication: Blood growth hormone decreased
     Dosage: 1.5 MG N/A DOSE EVERY N/A N/A
     Route: 058
     Dates: start: 20220208

REACTIONS (3)
  - Drug dose omission by device [Unknown]
  - Device occlusion [Unknown]
  - Device defective [Unknown]

NARRATIVE: CASE EVENT DATE: 20240910
